FAERS Safety Report 9619281 (Version 1)
Quarter: 2013Q4

REPORT INFORMATION
  Report Type: Spontaneous
  Country: FR (occurrence: FR)
  Receive Date: 20131014
  Receipt Date: 20131014
  Transmission Date: 20140711
  Serious: Yes (Hospitalization, Other)
  Sender: FDA-Public Use
  Company Number: FR-PFIZER INC-2013287259

PATIENT
  Age: 49 Year
  Sex: Male

DRUGS (6)
  1. SOLU-MEDROL [Suspect]
     Indication: PREMEDICATION
     Dosage: 100 MG, EVERY 14 DAYS
     Dates: start: 20130326, end: 201308
  2. KRYSTEXXA [Suspect]
     Indication: GOUT
     Dosage: 8 MG, EVERY 14 DAYS
     Route: 042
     Dates: start: 20130326, end: 201308
  3. POLARAMINE [Suspect]
     Indication: PREMEDICATION
     Dosage: 5 MG, EVERY 14 DAYS
     Dates: start: 20130326, end: 201308
  4. DAFALGAN [Concomitant]
     Indication: PAIN
     Dosage: UNK
     Route: 048
  5. COZAAR [Concomitant]
     Indication: HYPERTENSION
     Dosage: 50 TO 100 MG DAILY
     Route: 048
  6. INDOCID [Concomitant]
     Indication: PAIN
     Dosage: 25 MG, 4 TO 6 TIMES A DAY
     Route: 048

REACTIONS (4)
  - Electrocardiogram abnormal [Unknown]
  - Paraesthesia [Unknown]
  - Motor dysfunction [Unknown]
  - Tendonitis [Unknown]
